FAERS Safety Report 19267195 (Version 1)
Quarter: 2021Q2

REPORT INFORMATION
  Report Type: Report from Study
  Country: None (occurrence: US)
  Receive Date: 20210518
  Receipt Date: 20210518
  Transmission Date: 20210717
  Serious: Yes (Other)
  Sender: FDA-Public Use
  Company Number: US-ABBVIE-21K-163-3908006-00

PATIENT
  Sex: Female

DRUGS (1)
  1. HUMIRA [Suspect]
     Active Substance: ADALIMUMAB
     Indication: RHEUMATOID ARTHRITIS
     Dosage: CITRATE FREE
     Route: 058

REACTIONS (6)
  - Dry throat [Unknown]
  - Neuralgia [Unknown]
  - Dry skin [Unknown]
  - Dry eye [Not Recovered/Not Resolved]
  - Bone erosion [Not Recovered/Not Resolved]
  - Dry mouth [Unknown]
